FAERS Safety Report 12797223 (Version 2)
Quarter: 2016Q4

REPORT INFORMATION
  Report Type: Spontaneous
  Country: US (occurrence: US)
  Receive Date: 20160930
  Receipt Date: 20161027
  Transmission Date: 20170207
  Serious: No
  Sender: FDA-Public Use
  Company Number: US-PFIZER INC-2016456329

PATIENT
  Age: 54 Year
  Sex: Female
  Weight: 97.52 kg

DRUGS (5)
  1. ANASTOLE [Concomitant]
     Indication: NEOPLASM MALIGNANT
     Dosage: 1 DF, 1X/DAY
     Dates: start: 201309
  2. LEVOTHYROXINE. [Concomitant]
     Active Substance: LEVOTHYROXINE
     Indication: THYROID DISORDER
     Dosage: 75 UG, 1X/DAY
  3. CALCIUM [Concomitant]
     Active Substance: CALCIUM
     Dosage: UNK
  4. MAGNESIUM [Concomitant]
     Active Substance: MAGNESIUM
     Indication: HEADACHE
     Dosage: 400 MG, 2X/DAY
  5. ZOLOFT [Suspect]
     Active Substance: SERTRALINE HYDROCHLORIDE
     Indication: ANXIETY
     Dosage: 75 MG, 1X/DAY (50MG, 1 AND A HALF TABLET ONCE DAILY)
     Route: 048
     Dates: start: 2013

REACTIONS (5)
  - Somnolence [Not Recovered/Not Resolved]
  - Malaise [Unknown]
  - Headache [Unknown]
  - Weight decreased [Unknown]
  - Decreased appetite [Unknown]

NARRATIVE: CASE EVENT DATE: 2016
